FAERS Safety Report 4939294-2 (Version None)
Quarter: 2006Q1

REPORT INFORMATION
  Report Type: 
  Country: None (occurrence: None)
  Receive Date: 20060310
  Receipt Date: 20060224
  Transmission Date: 20060701
  Serious: Yes (Disabling, Other)
  Sender: FDA-Public Use
  Company Number: 2006GB00337

PATIENT
  Age: 62 Year
  Sex: Female
  Weight: 87 kg

DRUGS (8)
  1. NEXIUM [Suspect]
     Indication: GASTROOESOPHAGEAL REFLUX DISEASE
     Route: 048
     Dates: start: 20051205, end: 20060117
  2. OMEPRAZOLE [Concomitant]
     Indication: GASTROOESOPHAGEAL REFLUX DISEASE
     Route: 048
     Dates: start: 20030310
  3. FYBOGEL [Concomitant]
     Indication: CONSTIPATION
     Route: 048
     Dates: start: 20031103
  4. BECLOMETHASONE DIPROPIONATE [Concomitant]
     Indication: ASTHMA
     Route: 055
     Dates: start: 19991122
  5. SALBUTAMOL [Concomitant]
     Indication: ASTHMA
     Route: 055
     Dates: start: 20020805
  6. PNEUMOVAX II VACCINE [Concomitant]
     Route: 030
     Dates: start: 20051109, end: 20051109
  7. LACTULOSE [Concomitant]
     Indication: CONSTIPATION
     Route: 048
     Dates: start: 20020717
  8. CO-CODAMOL [Concomitant]
     Dosage: 30/500 PRN 8/DAY
     Route: 048
     Dates: start: 20051027

REACTIONS (6)
  - EYE DISORDER [None]
  - HALLUCINATION, VISUAL [None]
  - JOINT SWELLING [None]
  - MUSCLE CONTRACTIONS INVOLUNTARY [None]
  - MUSCLE TWITCHING [None]
  - MYALGIA [None]
